FAERS Safety Report 7284139-1 (Version None)
Quarter: 2011Q1

REPORT INFORMATION
  Report Type: 
  Country: None (occurrence: None)
  Receive Date: 20110209
  Receipt Date: 20110131
  Transmission Date: 20110831
  Serious: Yes (Hospitalization, Disabling)
  Sender: FDA-Public Use
  Company Number: JP-ABBOTT-10P-087-0687545-00

PATIENT
  Age: 70 Year
  Sex: Male

DRUGS (8)
  1. ASPIRIN [Concomitant]
     Indication: PRODUCT USED FOR UNKNOWN INDICATION
     Route: 048
  2. LEUPLIN SR FOR INJECTION 11.25 MG [Suspect]
     Indication: PROSTATE CANCER
     Route: 058
     Dates: start: 20100506, end: 20100826
  3. TS-1 [Suspect]
     Indication: LUNG ADENOCARCINOMA
     Dosage: 100MG (50MG, 2 IN 1 D)
     Route: 048
     Dates: start: 20091110, end: 20101018
  4. BUFFERIN [Concomitant]
     Indication: CEREBROVASCULAR ACCIDENT PROPHYLAXIS
     Dosage: 81MG (81MG, 1 IN 1 D)
     Route: 048
     Dates: start: 20091110, end: 20101110
  5. LOXONIN [Suspect]
     Indication: PYREXIA
     Dates: start: 20101001
  6. MIGLITOL [Concomitant]
     Indication: DIABETES MELLITUS
     Dosage: 150MG (50MG, 3 IN 1 D)
     Route: 048
     Dates: start: 20091110
  7. PANALDINE [Concomitant]
     Indication: CEREBROVASCULAR ACCIDENT PROPHYLAXIS
     Dosage: 200MG (100MG, 2 IN 1 D)
     Route: 048
     Dates: start: 20091110, end: 20101110
  8. LOXONIN [Suspect]
     Indication: ARTHRALGIA

REACTIONS (7)
  - PYREXIA [None]
  - RENAL IMPAIRMENT [None]
  - JOINT SWELLING [None]
  - ARTHRALGIA [None]
  - PAIN [None]
  - HAEMATURIA [None]
  - RENAL DISORDER [None]
